FAERS Safety Report 5320499-6 (Version None)
Quarter: 2007Q2

REPORT INFORMATION
  Report Type: 
  Country: None (occurrence: None)
  Receive Date: 20070509
  Receipt Date: 20070501
  Transmission Date: 20071010
  Serious: Yes (Death, Hospitalization)
  Sender: FDA-Public Use
  Company Number: US-JNJFOC-20060902485

PATIENT
  Age: 43 Year
  Sex: Female

DRUGS (4)
  1. ASPIRIN [Suspect]
     Indication: SUICIDE ATTEMPT
     Route: 048
  2. SERTRALINE [Suspect]
     Indication: SUICIDE ATTEMPT
     Route: 048
  3. COCAINE [Suspect]
     Indication: SUICIDE ATTEMPT
  4. CANNABINOIDS [Suspect]
     Indication: SUICIDE ATTEMPT

REACTIONS (4)
  - COMPLETED SUICIDE [None]
  - MULTI-ORGAN FAILURE [None]
  - MULTIPLE DRUG OVERDOSE [None]
  - SUBSTANCE ABUSE [None]
